FAERS Safety Report 5005987-4 (Version None)
Quarter: 2006Q1

REPORT INFORMATION
  Report Type: 
  Country: None (occurrence: None)
  Receive Date: 20060317
  Receipt Date: 20060317
  Transmission Date: 20060701
  Serious: Yes (Other)
  Sender: FDA-Public Use
  Company Number: None

PATIENT
  Sex: Female
  Weight: 68.9467 kg

DRUGS (1)
  1. ORAL SODIUM PHOSPHATE         FLEET [Suspect]
     Indication: COLONOSCOPY
     Dates: start: 20010826, end: 20010827

REACTIONS (4)
  - BLOOD CREATININE INCREASED [None]
  - OESOPHAGITIS [None]
  - POST PROCEDURAL COMPLICATION [None]
  - UPPER GASTROINTESTINAL HAEMORRHAGE [None]
